FAERS Safety Report 12725486 (Version 4)
Quarter: 2016Q4

REPORT INFORMATION
  Report Type: Report from Study
  Country: GB (occurrence: GB)
  Receive Date: 20160908
  Receipt Date: 20161226
  Transmission Date: 20170207
  Serious: Yes (Other)
  Sender: FDA-Public Use
  Company Number: PHFR2016GB006464

PATIENT
  Age: 71 Year
  Sex: Male

DRUGS (1)
  1. COSENTYX [Suspect]
     Active Substance: SECUKINUMAB
     Indication: PSORIATIC ARTHROPATHY
     Dosage: 150 MG, UNK
     Route: 058
     Dates: start: 201511, end: 201609

REACTIONS (8)
  - Tooth abscess [Recovered/Resolved]
  - Lower respiratory tract infection [Recovered/Resolved]
  - Oral fungal infection [Recovered/Resolved]
  - Mouth ulceration [Not Recovered/Not Resolved]
  - Gingivitis [Recovered/Resolved]
  - Fatigue [Recovered/Resolved]
  - Rhinitis [Recovered/Resolved]
  - Blister [Not Recovered/Not Resolved]

NARRATIVE: CASE EVENT DATE: 201605
